FAERS Safety Report 20319345 (Version 2)
Quarter: 2022Q1

REPORT INFORMATION
  Report Type: Other
  Country: None (occurrence: US)
  Receive Date: 20220110
  Receipt Date: 20220124
  Transmission Date: 20220423
  Serious: Yes (Death)
  Sender: FDA-Public Use
  Company Number: US-Mission Pharmacal Company-2123775

PATIENT
  Age: 87 Year
  Sex: Female

DRUGS (1)
  1. THIOLA EC [Suspect]
     Active Substance: TIOPRONIN
     Indication: Cystinuria
     Route: 048
     Dates: start: 20200302, end: 20220104

REACTIONS (4)
  - Kidney infection [Fatal]
  - Traumatic lung injury [Fatal]
  - Death [Fatal]
  - Dysphagia [Fatal]

NARRATIVE: CASE EVENT DATE: 20220104
